FAERS Safety Report 8426249-9 (Version None)
Quarter: 2012Q2

REPORT INFORMATION
  Report Type: 
  Country: None (occurrence: None)
  Receive Date: 20120517
  Receipt Date: 20120508
  Transmission Date: 20120825
  Serious: Yes (Life-Threatening, Hospitalization)
  Sender: FDA-Public Use
  Company Number: 2011029169

PATIENT
  Age: 13 Year

DRUGS (6)
  1. IGPRO20 (IMMUNOGLOBULIN HUMAN NORMAL) [Suspect]
     Indication: BRUTON'S AGAMMAGLOBULINAEMIA
     Dates: start: 20110120, end: 20110707
  2. INTAL [Concomitant]
  3. IBUPROFEN [Concomitant]
  4. ASTOMIN (DIMEMORFAN PHOSPHATE) [Concomitant]
  5. MUCODYNE (CARBOCISTEINE) [Concomitant]
  6. VALTREX [Concomitant]

REACTIONS (17)
  - ABDOMINAL PAIN [None]
  - MENINGITIS ASEPTIC [None]
  - SCREAMING [None]
  - VIRAL INFECTION [None]
  - DIARRHOEA [None]
  - FLUID INTAKE REDUCED [None]
  - VASCULITIS [None]
  - DRUG ERUPTION [None]
  - ENCEPHALITIS [None]
  - HERPES ZOSTER OTICUS [None]
  - VARICELLA [None]
  - DYSTONIA [None]
  - ORAL MUCOSAL HYPERTROPHY [None]
  - CYST [None]
  - TINNITUS [None]
  - SCAB [None]
  - MENINGITIS ENTEROVIRAL [None]
